FAERS Safety Report 9791946 (Version 1)
Quarter: 2014Q1

REPORT INFORMATION
  Report Type: Spontaneous
  Country: US (occurrence: US)
  Receive Date: 20140102
  Receipt Date: 20140102
  Transmission Date: 20141002
  Serious: No
  Sender: FDA-Public Use
  Company Number: US-PFIZER INC-2013374371

PATIENT
  Age: 56 Year
  Sex: Male
  Weight: 113.38 kg

DRUGS (5)
  1. GEODON [Suspect]
     Indication: BIPOLAR DISORDER
     Dosage: UNK
  2. DEPAKOTE [Suspect]
     Indication: BIPOLAR DISORDER
     Dosage: UNK
  3. TEGRETOL [Suspect]
     Indication: BIPOLAR DISORDER
     Dosage: UNK
  4. INVEGA [Suspect]
     Indication: BIPOLAR DISORDER
     Dosage: UNK
     Dates: start: 2009
  5. KLONOPIN [Concomitant]
     Indication: TOURETTE^S DISORDER
     Dosage: UNK

REACTIONS (6)
  - Feeling drunk [Recovered/Resolved]
  - Balance disorder [Recovered/Resolved]
  - Gait disturbance [Recovered/Resolved]
  - Dizziness [Recovered/Resolved]
  - Weight increased [Unknown]
  - Drug ineffective [Unknown]
